FAERS Safety Report 5656305-X (Version None)
Quarter: 2008Q1

REPORT INFORMATION
  Report Type: 
  Country: None (occurrence: None)
  Receive Date: 20080309
  Receipt Date: 20071127
  Transmission Date: 20080703
  Serious: No
  Sender: FDA-Public Use
  Company Number: US-BAYER-200712609BCC

PATIENT
  Age: 79 Year
  Sex: Male
  Weight: 102 kg

DRUGS (6)
  1. ALEVE [Suspect]
     Indication: ARTHRALGIA
     Dosage: TOTAL DAILY DOSE: 220 MG  UNIT DOSE: 220 MG
     Route: 048
     Dates: start: 20070101, end: 20070801
  2. ATENOLOL [Concomitant]
  3. ASPIRIN GENERIC [Concomitant]
  4. FLOMAX [Concomitant]
  5. RANITIDINE [Concomitant]
  6. NORTRIPTYLINE HCL [Concomitant]

REACTIONS (1)
  - SKIN BURNING SENSATION [None]
